FAERS Safety Report 18664683 (Version 1)
Quarter: 2020Q4

REPORT INFORMATION
  Report Type: Spontaneous
  Country: FR (occurrence: FR)
  Receive Date: 20201225
  Receipt Date: 20201225
  Transmission Date: 20210114
  Serious: Yes (Hospitalization)
  Sender: FDA-Public Use
  Company Number: NVSC2020FR334675

PATIENT
  Age: 40 Year
  Sex: Male
  Weight: 78 kg

DRUGS (2)
  1. RITALIN [Suspect]
     Active Substance: METHYLPHENIDATE HYDROCHLORIDE
     Indication: PRODUCT USED FOR UNKNOWN INDICATION
     Dosage: UNK
     Route: 042
     Dates: start: 202001
  2. SKENAN [Suspect]
     Active Substance: MORPHINE SULFATE
     Indication: PRODUCT USED FOR UNKNOWN INDICATION
     Dosage: UNK
     Route: 042

REACTIONS (4)
  - Drug abuse [Not Recovered/Not Resolved]
  - Arthritis bacterial [Recovering/Resolving]
  - Sacroiliitis [Recovering/Resolving]
  - Brachial artery entrapment syndrome [Not Recovered/Not Resolved]

NARRATIVE: CASE EVENT DATE: 20200423
